FAERS Safety Report 21223603 (Version 2)
Quarter: 2023Q4

REPORT INFORMATION
  Report Type: Report from Study
  Country: JP (occurrence: None)
  Receive Date: 20220817
  Receipt Date: 20231212
  Transmission Date: 20240109
  Serious: Yes (Death, Other)
  Sender: FDA-Public Use
  Company Number: 2022A286691

PATIENT
  Age: 65 Year
  Sex: Male

DRUGS (1)
  1. ONDEXXYA [Suspect]
     Active Substance: ANDEXANET ALFA
     Indication: Cerebellar haemorrhage
     Dosage: DOSE UNKNOWN
     Route: 042
     Dates: start: 20220719

REACTIONS (3)
  - Cardiac failure [Fatal]
  - Pleural effusion [Unknown]
  - Renal impairment [Unknown]

NARRATIVE: CASE EVENT DATE: 20220719
